FAERS Safety Report 10733065 (Version 1)
Quarter: 2015Q1

REPORT INFORMATION
  Report Type: Spontaneous
  Country: DK (occurrence: DK)
  Receive Date: 20150123
  Receipt Date: 20150123
  Transmission Date: 20150721
  Serious: Yes (Disabling)
  Sender: FDA-Public Use
  Company Number: DK-ACTAVIS-2015-00467

PATIENT
  Age: 20 Year
  Sex: Female

DRUGS (3)
  1. DOCETAXEL ACTAVIS [Suspect]
     Active Substance: DOCETAXEL
     Indication: BREAST CANCER
     Dosage: UNK
     Route: 065
     Dates: start: 20120125, end: 20120621
  2. EPIRUBICIN [Concomitant]
     Active Substance: EPIRUBICIN
     Indication: BREAST CANCER
     Dosage: UNK
     Route: 065
  3. CYCLOPHOSPHAMIDE. [Concomitant]
     Active Substance: CYCLOPHOSPHAMIDE
     Indication: BREAST CANCER
     Dosage: UNK
     Route: 065

REACTIONS (13)
  - Muscular weakness [Unknown]
  - Walking disability [Not Recovered/Not Resolved]
  - Myalgia [Unknown]
  - Hypoaesthesia [Unknown]
  - Neurological symptom [Not Recovered/Not Resolved]
  - Paraesthesia [Unknown]
  - Polyneuropathy [Unknown]
  - Pain in extremity [Unknown]
  - Peripheral swelling [Unknown]
  - Wheelchair user [Not Recovered/Not Resolved]
  - Burning sensation [Unknown]
  - Paraesthesia [Unknown]
  - Balance disorder [Unknown]

NARRATIVE: CASE EVENT DATE: 20120723
